FAERS Safety Report 13074247 (Version 5)
Quarter: 2017Q3

REPORT INFORMATION
  Report Type: Spontaneous
  Country: IT (occurrence: IT)
  Receive Date: 20161230
  Receipt Date: 20170918
  Transmission Date: 20171127
  Serious: Yes (Other)
  Sender: FDA-Public Use
  Company Number: IT-ROCHE-1872658

PATIENT
  Age: 50 Year
  Sex: Female
  Weight: 72 kg

DRUGS (4)
  1. XELODA [Suspect]
     Active Substance: CAPECITABINE
     Indication: BREAST CANCER STAGE IV
     Dosage: DATE OF MOST RECENT DOSE OF CAPECITABINE: 22/NOV/2016; 4 DOSAGE UNITS?DATE OF MOST RECENT DOSE OF CA
     Route: 048
     Dates: start: 20161004
  2. AVASTIN [Suspect]
     Active Substance: BEVACIZUMAB
     Indication: BREAST CANCER STAGE IV
     Dosage: DATE OF MOST RECENT DOSE OF BEVACIZUMAB: 22/NOV/2016?DATE OF MOST RECENT DOSE OF BEVACIZUMAB: 11/APR
     Route: 042
     Dates: start: 20161004
  3. PACLITAXEL. [Suspect]
     Active Substance: PACLITAXEL
     Indication: BREAST CANCER STAGE IV
     Dosage: LAST DOSE ADMINISTERED 26/JUL/2016
     Route: 042
     Dates: start: 20160412
  4. AVASTIN [Suspect]
     Active Substance: BEVACIZUMAB
     Indication: INVASIVE DUCTAL BREAST CARCINOMA
     Route: 042
     Dates: start: 20160628

REACTIONS (9)
  - Onychoclasis [Not Recovered/Not Resolved]
  - Thrombocytopenia [Unknown]
  - Neutropenia [Recovering/Resolving]
  - Paraesthesia [Recovering/Resolving]
  - Hypertension [Unknown]
  - Paraesthesia [Recovering/Resolving]
  - Anaemia [Recovering/Resolving]
  - Vaginal infection [Recovering/Resolving]
  - Skin hyperpigmentation [Not Recovered/Not Resolved]

NARRATIVE: CASE EVENT DATE: 20160713
